FAERS Safety Report 5903517-3 (Version None)
Quarter: 2008Q3

REPORT INFORMATION
  Report Type: 
  Country: None (occurrence: None)
  Receive Date: 20080919
  Receipt Date: 20080818
  Transmission Date: 20090109
  Serious: No
  Sender: FDA-Public Use
  Company Number: US-WYE-H05628508

PATIENT
  Age: 55 Year
  Sex: Female

DRUGS (5)
  1. PRISTIQ [Suspect]
     Indication: DEPRESSION
     Dosage: 50 MG 1X PER 1 DAY, ORAL
     Route: 048
     Dates: start: 20080811
  2. NEXIUM [Concomitant]
  3. WELLBUTRIN [Concomitant]
  4. ATIVAN [Concomitant]
  5. SEROQUEL [Concomitant]

REACTIONS (6)
  - APATHY [None]
  - CONDITION AGGRAVATED [None]
  - DISTURBANCE IN ATTENTION [None]
  - DIZZINESS [None]
  - FEELING ABNORMAL [None]
  - NERVOUSNESS [None]
